FAERS Safety Report 10420680 (Version 1)
Quarter: 2014Q3

REPORT INFORMATION
  Report Type: Spontaneous
  Country: US (occurrence: None)
  Receive Date: 20140703
  Receipt Date: 20140703
  Transmission Date: 20150326
  Serious: Yes (Other)
  Sender: FDA-Public Use
  Company Number: 2013100042

PATIENT
  Sex: Female

DRUGS (4)
  1. BENZODIAZEPINES [Suspect]
     Active Substance: BENZODIAZEPINE
  2. ALCOHOL (ETHANOL) [Suspect]
     Active Substance: ALCOHOL
  3. SOMA [Suspect]
     Active Substance: CARISOPRODOL
  4. OXYCONTIN [Suspect]
     Active Substance: OXYCODONE HYDROCHLORIDE

REACTIONS (1)
  - Substance abuse [None]
